FAERS Safety Report 10011680 (Version 3)
Quarter: 2014Q4

REPORT INFORMATION
  Report Type: Spontaneous
  Country: IT (occurrence: IT)
  Receive Date: 20140314
  Receipt Date: 20141118
  Transmission Date: 20150528
  Serious: Yes (Other)
  Sender: FDA-Public Use
  Company Number: IT-009507513-1403ITA005104

PATIENT
  Age: 59 Year
  Sex: Male
  Weight: 74.5 kg

DRUGS (4)
  1. VICTRELIS [Suspect]
     Active Substance: BOCEPREVIR
     Indication: ANTIVIRAL TREATMENT
     Dosage: 4X 200MG CAPSULES, TID; 2400MG TOTAL DAILY DOSE
     Route: 048
     Dates: start: 20131011
  2. COPEGUS [Interacting]
     Active Substance: RIBAVIRIN
     Dosage: 3 CAPSULES DAILY;TOTAL DAILY DOSE: 600 MG
     Route: 048
     Dates: start: 20131029
  3. PEGASYS [Interacting]
     Active Substance: PEGINTERFERON ALFA-2A
     Indication: ANTIVIRAL TREATMENT
     Dosage: 180 MICROGRAM, WEEKLY
     Route: 058
     Dates: start: 20130909
  4. COPEGUS [Interacting]
     Active Substance: RIBAVIRIN
     Indication: ANTIVIRAL TREATMENT
     Dosage: 6  CAPSULES DAILY; TOTAL  DAILY DOSE 1200MG
     Route: 048
     Dates: start: 20130909, end: 20131028

REACTIONS (2)
  - Pancytopenia [Recovering/Resolving]
  - Drug interaction [Unknown]

NARRATIVE: CASE EVENT DATE: 20131029
